FAERS Safety Report 7298666-4 (Version None)
Quarter: 2011Q1

REPORT INFORMATION
  Report Type: 
  Country: None (occurrence: None)
  Receive Date: 20110217
  Receipt Date: 20110213
  Transmission Date: 20110831
  Serious: Yes (Death, Other)
  Sender: FDA-Public Use
  Company Number: US-JNJFOC-20110205215

PATIENT
  Sex: Male

DRUGS (7)
  1. CELEXA [Interacting]
     Indication: DEPRESSION
     Route: 065
  2. ANTIDEPRESSANTS [Interacting]
     Indication: ILL-DEFINED DISORDER
  3. OXYMORPHONE [Interacting]
     Indication: ILL-DEFINED DISORDER
  4. ATIVAN [Interacting]
     Indication: ILL-DEFINED DISORDER
  5. RISPERDAL [Suspect]
     Indication: ILL-DEFINED DISORDER
     Route: 065
  6. KLONOPIN [Interacting]
     Indication: ANXIETY
     Route: 065
  7. OXYCODONE [Interacting]
     Indication: ILL-DEFINED DISORDER

REACTIONS (6)
  - DEPRESSION [None]
  - DELUSION [None]
  - DEATH [None]
  - DRUG INTERACTION [None]
  - DELIRIUM [None]
  - ANXIETY [None]
